FAERS Safety Report 5002189-2 (Version None)
Quarter: 2006Q2

REPORT INFORMATION
  Report Type: 
  Country: None (occurrence: None)
  Receive Date: 20060515
  Receipt Date: 20060324
  Transmission Date: 20061013
  Serious: Yes (Hospitalization)
  Sender: FDA-Public Use
  Company Number: PHBS2006FR04405

PATIENT
  Age: 5 Day
  Sex: Female

DRUGS (4)
  1. FORADIL [Suspect]
  2. AERIUS [Suspect]
     Indication: ASTHMA
     Dosage: 5 MG, QD
  3. UVESTEROL [Concomitant]
     Dosage: 2 DRP, QD
  4. VITAMIN K [Concomitant]
     Dosage: 1 AMPULE/WEEK

REACTIONS (14)
  - DRUG EXPOSURE DURING PREGNANCY [None]
  - DRUG EXPOSURE VIA BREAST MILK [None]
  - DYSPNOEA [None]
  - FEEDING DISORDER NEONATAL [None]
  - FEELING ABNORMAL [None]
  - HYPOTONIA [None]
  - HYPOTONIA NEONATAL [None]
  - NASAL CONGESTION [None]
  - NASOPHARYNGITIS [None]
  - NEONATAL DISORDER [None]
  - REGURGITATION OF FOOD [None]
  - RHINORRHOEA [None]
  - SOMNOLENCE [None]
  - SOMNOLENCE NEONATAL [None]
